FAERS Safety Report 23634331 (Version 1)
Quarter: 2024Q1

REPORT INFORMATION
  Report Type: Spontaneous
  Country: US (occurrence: US)
  Receive Date: 20240314
  Receipt Date: 20240314
  Transmission Date: 20240410
  Serious: No
  Sender: FDA-Public Use
  Company Number: US-BAUSCHBL-2024BNL001384

PATIENT
  Age: 74 Year
  Sex: Male
  Weight: 97.97 kg

DRUGS (3)
  1. LUMIFY [Suspect]
     Active Substance: BRIMONIDINE TARTRATE
     Indication: Ocular hyperaemia
     Route: 047
     Dates: start: 202401, end: 20240131
  2. LUMIFY [Suspect]
     Active Substance: BRIMONIDINE TARTRATE
  3. CLEAR EYES [NAPHAZOLINE HYDROCHLORIDE] [Concomitant]
     Indication: Product used for unknown indication

REACTIONS (5)
  - Erythema [Unknown]
  - Inappropriate schedule of product administration [Unknown]
  - Product packaging quantity issue [Unknown]
  - Product use issue [Unknown]
  - Product dose omission in error [Unknown]
